FAERS Safety Report 5088690-4 (Version None)
Quarter: 2006Q3

REPORT INFORMATION
  Report Type: 
  Country: None (occurrence: None)
  Receive Date: 20060822
  Receipt Date: 20060601
  Transmission Date: 20061208
  Serious: Yes (Hospitalization)
  Sender: FDA-Public Use
  Company Number: A03200603500

PATIENT
  Age: 79 Year
  Sex: Female

DRUGS (4)
  1. OXALIPLATIN [Suspect]
     Indication: COLORECTAL CANCER STAGE III
     Dosage: INTRAVENOUS NOS
     Route: 042
     Dates: start: 20060510, end: 20060510
  2. FLUOROURACIL [Suspect]
     Indication: COLORECTAL CANCER STAGE III
     Dosage: INTRAVENOUS NOS
     Route: 042
  3. LEUVOCORIN - SOLUTION [Suspect]
     Indication: COLORECTAL CANCER STAGE III
     Dosage: INTRAVENOUS NOS
     Route: 042
  4. WARFARIN SODIUM [Concomitant]

REACTIONS (4)
  - ANAPHYLACTIC SHOCK [None]
  - CARDIO-RESPIRATORY ARREST [None]
  - DRUG INEFFECTIVE [None]
  - INFUSION RELATED REACTION [None]
